FAERS Safety Report 21789702 (Version 2)
Quarter: 2023Q1

REPORT INFORMATION
  Report Type: Report from Study
  Country: IT (occurrence: IT)
  Receive Date: 20221228
  Receipt Date: 20230104
  Transmission Date: 20230418
  Serious: Yes (Hospitalization)
  Sender: FDA-Public Use
  Company Number: None

PATIENT
  Age: 80 Year
  Sex: Female

DRUGS (7)
  1. TOPAMAX [Suspect]
     Active Substance: TOPIRAMATE
     Indication: Suicide attempt
     Route: 065
     Dates: start: 20220914, end: 20220914
  2. TOPAMAX [Suspect]
     Active Substance: TOPIRAMATE
     Route: 065
     Dates: start: 20220914, end: 20220914
  3. FERROGLYCINE SULFATE [Suspect]
     Active Substance: FERROGLYCINE SULFATE
     Indication: Suicide attempt
     Route: 048
     Dates: start: 20220914, end: 20220914
  4. ACYCLOVIR [Suspect]
     Active Substance: ACYCLOVIR
     Indication: Suicide attempt
     Route: 065
     Dates: start: 20220914, end: 20220914
  5. LORMETAZEPAM [Suspect]
     Active Substance: LORMETAZEPAM
     Indication: Suicide attempt
     Dosage: 3 VIALS
     Route: 048
  6. ACETAMINOPHEN [Suspect]
     Active Substance: ACETAMINOPHEN
     Indication: Suicide attempt
     Route: 048
     Dates: start: 20220914, end: 20220914
  7. BUTYLSCOPOLAMINE BROMIDE [Concomitant]
     Active Substance: BUTYLSCOPOLAMINE BROMIDE
     Indication: Completed suicide

REACTIONS (3)
  - Drug abuse [Recovered/Resolved]
  - Pneumonia aspiration [Not Recovered/Not Resolved]
  - Coma [Not Recovered/Not Resolved]

NARRATIVE: CASE EVENT DATE: 20220914
